FAERS Safety Report 4910578-7 (Version None)
Quarter: 2006Q1

REPORT INFORMATION
  Report Type: 
  Country: None (occurrence: None)
  Receive Date: 20060208
  Receipt Date: 20060208
  Transmission Date: 20060701
  Serious: Yes (Hospitalization)
  Sender: FDA-Public Use
  Company Number: None

PATIENT
  Age: 53 Year
  Sex: Female

DRUGS (3)
  1. BUSPAR [Suspect]
     Dosage: 20 MG BID PO
     Route: 048
  2. KLONOPIN [Suspect]
     Dosage: 20 MG BID PO
     Route: 048
  3. VENLAFAXINE HCL [Suspect]
     Dosage: 150 MG QD PO
     Route: 048

REACTIONS (5)
  - CLONUS [None]
  - CONFUSIONAL STATE [None]
  - MUSCLE RIGIDITY [None]
  - PYREXIA [None]
  - TREMOR [None]
